FAERS Safety Report 19107970 (Version 1)
Quarter: 2021Q2

REPORT INFORMATION
  Report Type: Spontaneous
  Country: US (occurrence: US)
  Receive Date: 20210408
  Receipt Date: 20210408
  Transmission Date: 20210717
  Serious: Yes (Other)
  Sender: FDA-Public Use
  Company Number: US-GLAXOSMITHKLINE-US2021GSK076493

PATIENT
  Sex: Female

DRUGS (8)
  1. ZANTAC [Suspect]
     Active Substance: RANITIDINE HYDROCHLORIDE
     Dosage: 300 MG, TAKEN AS NEEDED
     Route: 065
     Dates: start: 200501, end: 202003
  2. RANITIDINE. [Suspect]
     Active Substance: RANITIDINE
     Indication: DYSPEPSIA
     Dosage: 300 MG, TAKEN AS NEEDED
     Route: 065
     Dates: start: 201405, end: 201505
  3. RANITIDINE. [Suspect]
     Active Substance: RANITIDINE
     Indication: DYSPEPSIA
     Dosage: 300 MG, TAKEN AS NEEDED
     Route: 065
     Dates: start: 201405, end: 201505
  4. ZANTAC [Suspect]
     Active Substance: RANITIDINE HYDROCHLORIDE
     Indication: DYSPEPSIA
     Dosage: 300 MG, TAKEN AS NEEDED
     Route: 065
     Dates: start: 200501, end: 202003
  5. RANITIDINE CAPSULE [Suspect]
     Active Substance: RANITIDINE
     Indication: DYSPEPSIA
     Dosage: 300 MG, TAKEN AS NEEDED
     Route: 065
     Dates: start: 200501, end: 202003
  6. ZANTAC [Suspect]
     Active Substance: RANITIDINE HYDROCHLORIDE
     Indication: DYSPEPSIA
     Dosage: 300 MG, TAKEN AS NEEDED
     Route: 065
     Dates: start: 200501, end: 202003
  7. RANITIDINE. [Suspect]
     Active Substance: RANITIDINE
     Indication: DYSPEPSIA
     Dosage: 300 MG, TAKEN AS NEEDED
     Route: 065
     Dates: start: 201405, end: 201505
  8. RANITIDINE CAPSULE [Suspect]
     Active Substance: RANITIDINE
     Indication: DYSPEPSIA
     Dosage: 300 MG, TAKEN AS NEEDED
     Route: 065
     Dates: start: 201405, end: 201505

REACTIONS (1)
  - Thyroid cancer [Unknown]
